FAERS Safety Report 5311875-6 (Version None)
Quarter: 2007Q2

REPORT INFORMATION
  Report Type: 
  Country: None (occurrence: None)
  Receive Date: 20070430
  Receipt Date: 20060330
  Transmission Date: 20071010
  Serious: No
  Sender: FDA-Public Use
  Company Number: 2006UW05644

PATIENT
  Age: 62 Year
  Sex: Male
  Weight: 68.9 kg

DRUGS (5)
  1. NEXIUM [Suspect]
     Indication: BARRETT'S OESOPHAGUS
     Route: 048
  2. NEXIUM [Suspect]
     Route: 048
  3. PROSCAR [Concomitant]
  4. ASPIRIN [Concomitant]
  5. TETRACYCLINE [Concomitant]

REACTIONS (2)
  - CHOKING [None]
  - DYSPHONIA [None]
